FAERS Safety Report 6217624-1 (Version None)
Quarter: 2009Q2

REPORT INFORMATION
  Report Type: 
  Country: None (occurrence: None)
  Receive Date: 20090608
  Receipt Date: 20090417
  Transmission Date: 20091009
  Serious: No
  Sender: FDA-Public Use
  Company Number: A0780595A

PATIENT
  Sex: Female

DRUGS (1)
  1. WELLBUTRIN XL [Suspect]
     Indication: SMOKING CESSATION THERAPY
     Dosage: 150MG UNKNOWN
     Route: 048
     Dates: start: 20081001

REACTIONS (2)
  - EX-TOBACCO USER [None]
  - TREMOR [None]
